FAERS Safety Report 6344137-9 (Version None)
Quarter: 2009Q3

REPORT INFORMATION
  Report Type: 
  Country: None (occurrence: None)
  Receive Date: 20090908
  Receipt Date: 20090831
  Transmission Date: 20100115
  Serious: Yes (Hospitalization)
  Sender: FDA-Public Use
  Company Number: FR-SANOFI-SYNTHELABO-A02200902251

PATIENT
  Sex: Male

DRUGS (2)
  1. ISOPTIN [Suspect]
     Indication: DRUG USE FOR UNKNOWN INDICATION
     Route: 048
  2. PLAQUENIL [Suspect]
     Indication: ECZEMA
     Route: 048
     Dates: start: 20090724, end: 20090807

REACTIONS (1)
  - DYSHIDROSIS [None]
